FAERS Safety Report 9577926 (Version 1)
Quarter: 2013Q4

REPORT INFORMATION
  Report Type: Spontaneous
  Country: US (occurrence: US)
  Receive Date: 20131001
  Receipt Date: 20131001
  Transmission Date: 20140711
  Serious: No
  Sender: FDA-Public Use
  Company Number: US-AMGEN-USASP2013010149

PATIENT
  Age: 52 Year
  Sex: Female
  Weight: 61.68 kg

DRUGS (6)
  1. ENBREL [Suspect]
     Indication: RHEUMATOID ARTHRITIS
     Dosage: 50 MG, QWK
     Route: 058
     Dates: start: 201206
  2. SYNTHROID [Concomitant]
     Dosage: 100 MUG, UNK
  3. METHOTREXATE [Concomitant]
     Dosage: 2.5 MG, UNK
  4. FOLIC ACID [Concomitant]
     Dosage: 5 MG, UNK
  5. METHYLPRED [Concomitant]
     Dosage: 4 MG, UNK
  6. HYDROXYCHLOROQUINE [Concomitant]
     Dosage: 200 MG, UNK

REACTIONS (2)
  - Conjunctivitis [Recovered/Resolved]
  - Sinusitis [Recovered/Resolved]
